FAERS Safety Report 4321076-6 (Version None)
Quarter: 2004Q1

REPORT INFORMATION
  Report Type: 
  Country: None (occurrence: None)
  Receive Date: 20040311
  Receipt Date: 20030619
  Transmission Date: 20041129
  Serious: Yes (Hospitalization)
  Sender: FDA-Public Use
  Company Number: DPC-2003-00167(1)

PATIENT
  Age: 36 Year
  Sex: Female

DRUGS (11)
  1. EVOXAC [Suspect]
     Indication: SJOGREN'S SYNDROME
     Dosage: NI, ORAL
     Route: 048
  2. PREDNISONE [Concomitant]
  3. CYCLOPHOSPHAMIDE [Concomitant]
  4. PLAQUENIL (HYDROXYCHLOROQUINE SULFATE) (HYDROXYCHLOROQUINE [Concomitant]
  5. LASIX [Concomitant]
  6. XANAX (ALPRAZOLAM) (ALPRAZOLAM) [Concomitant]
  7. TRAZODONE (TRAZODONE) (TRAZODONE) [Concomitant]
  8. OXYCONTIN (OXYCODONE HYDROCHLORIDE) (OXYCODONE HYDROCHLORIDE) [Concomitant]
  9. PROCRIT (ERYTHROPOIETIN) (ERYTHROPOIETIN) [Concomitant]
  10. DEXAMETHASONE (DEXAMETHASONE) (DEXAMETHASONE) [Concomitant]
  11. PIOGLITAZONE (PIOGLITAZONE) (PIOGLITAZONE) [Concomitant]

REACTIONS (1)
  - PULMONARY EMBOLISM [None]
